FAERS Safety Report 22181030 (Version 1)
Quarter: 2023Q2

REPORT INFORMATION
  Report Type: Spontaneous
  Country: JP (occurrence: JP)
  Receive Date: 20230406
  Receipt Date: 20230406
  Transmission Date: 20230721
  Serious: Yes (Death, Other)
  Sender: FDA-Public Use
  Company Number: JP-CHUGAI-2022025716

PATIENT
  Age: 60 Year
  Sex: Male
  Weight: 58.7 kg

DRUGS (2)
  1. GAZYVA [Suspect]
     Active Substance: OBINUTUZUMAB
     Indication: Follicular lymphoma
     Dosage: 1000 MILLIGRAM/DAY
     Route: 041
     Dates: start: 20210818, end: 20211014
  2. BENDAMUSTINE HYDROCHLORIDE [Concomitant]
     Active Substance: BENDAMUSTINE HYDROCHLORIDE
     Indication: Follicular lymphoma
     Dosage: 150 MILLIGRAM, QD
     Route: 041
     Dates: start: 20210817, end: 20211012

REACTIONS (3)
  - Staphylococcal bacteraemia [Fatal]
  - Pneumonia [Fatal]
  - Cytopenia [Unknown]

NARRATIVE: CASE EVENT DATE: 20211018
